FAERS Safety Report 4278470-1 (Version None)
Quarter: 2004Q1

REPORT INFORMATION
  Report Type: 
  Country: None (occurrence: None)
  Receive Date: 20040123
  Receipt Date: 20040114
  Transmission Date: 20041129
  Serious: Yes (Death)
  Sender: FDA-Public Use
  Company Number: WAES 0401USA01026

PATIENT

DRUGS (1)
  1. STROMECTOL [Suspect]
     Route: 048

REACTIONS (1)
  - DEATH [None]
